FAERS Safety Report 20101787 (Version 6)
Quarter: 2022Q1

REPORT INFORMATION
  Report Type: Spontaneous
  Country: CZ (occurrence: CZ)
  Receive Date: 20211123
  Receipt Date: 20220329
  Transmission Date: 20220423
  Serious: Yes (Hospitalization, Other)
  Sender: FDA-Public Use
  Company Number: CZ-MYLANLABS-2021M1086534

PATIENT
  Age: 59 Year
  Sex: Female
  Weight: 64.9 kg

DRUGS (35)
  1. CLOZAPINE [Suspect]
     Active Substance: CLOZAPINE
     Indication: Antipsychotic therapy
     Dosage: UNK
  2. CLOZAPINE [Suspect]
     Active Substance: CLOZAPINE
     Indication: Schizophrenia
     Dosage: 500 MILLIGRAM
     Route: 065
  3. CLOZAPINE [Suspect]
     Active Substance: CLOZAPINE
     Dosage: 300 MILLIGRAM
     Route: 065
  4. CLOZAPINE [Suspect]
     Active Substance: CLOZAPINE
     Dosage: 300 MILLIGRAM (CLOZAPINE WAS INCREASED TO 500 MG, DISCHARGED HOME)
     Route: 065
  5. OLANZAPINE [Suspect]
     Active Substance: OLANZAPINE
     Indication: Antipsychotic therapy
     Dosage: UNK
  6. OLANZAPINE [Suspect]
     Active Substance: OLANZAPINE
     Indication: Schizophrenia
     Dosage: 10 MILLIGRAM (10 MG)
     Route: 065
  7. QUETIAPINE [Suspect]
     Active Substance: QUETIAPINE
     Indication: Antipsychotic therapy
     Dosage: UNK
     Route: 065
  8. QUETIAPINE [Suspect]
     Active Substance: QUETIAPINE
     Indication: Schizophrenia
     Dosage: 400 MILLIGRAM (400 MG, UNKNOWN)
     Route: 065
  9. ARIPIPRAZOLE [Suspect]
     Active Substance: ARIPIPRAZOLE
     Indication: Antipsychotic therapy
     Dosage: UNK
  10. ARIPIPRAZOLE [Suspect]
     Active Substance: ARIPIPRAZOLE
     Indication: Schizophrenia
     Dosage: 15 MILLIGRAM (15 MG)
     Route: 065
  11. RISPERIDONE [Suspect]
     Active Substance: RISPERIDONE
     Indication: Schizophrenia
     Dosage: UNK
     Route: 030
  12. RISPERIDONE [Suspect]
     Active Substance: RISPERIDONE
     Indication: Antipsychotic therapy
     Dosage: 100 MILLIGRAM (50 MG, BIW)
     Route: 030
  13. RISPERIDONE [Suspect]
     Active Substance: RISPERIDONE
     Dosage: 30 MILLIGRAM (15 MG, BIW)
     Route: 030
  14. RISPERIDONE [Suspect]
     Active Substance: RISPERIDONE
     Dosage: 4 MILLIGRAM (4 MG, UNKNOWN )
     Route: 030
  15. PALIPERIDONE [Suspect]
     Active Substance: PALIPERIDONE
     Indication: Antipsychotic therapy
     Dosage: UNK
     Route: 030
  16. PALIPERIDONE [Suspect]
     Active Substance: PALIPERIDONE
     Indication: Schizophrenia
     Dosage: UNK
     Route: 030
  17. PALIPERIDONE [Suspect]
     Active Substance: PALIPERIDONE
     Dosage: 100 MILLIGRAM, QW (50 MG, BIW)
     Route: 030
  18. PALIPERIDONE [Suspect]
     Active Substance: PALIPERIDONE
     Dosage: 100 MILLIGRAM, MONTHLY (100 MG, QM)
     Route: 030
  19. HALOPERIDOL [Suspect]
     Active Substance: HALOPERIDOL
     Indication: Antipsychotic therapy
     Dosage: UNK
  20. HALOPERIDOL [Suspect]
     Active Substance: HALOPERIDOL
     Indication: Schizophrenia
     Dosage: 4 MILLIGRAM (4MG)
     Route: 065
  21. SERTINDOLE [Suspect]
     Active Substance: SERTINDOLE
     Indication: Antipsychotic therapy
     Dosage: UNK
  22. SERTINDOLE [Suspect]
     Active Substance: SERTINDOLE
     Indication: Schizophrenia
     Dosage: UNK
  23. LEVOMEPROMAZINE [Suspect]
     Active Substance: LEVOMEPROMAZINE
     Indication: Antipsychotic therapy
     Dosage: UNK
     Route: 065
  24. LEVOMEPROMAZINE [Suspect]
     Active Substance: LEVOMEPROMAZINE
     Indication: Schizophrenia
  25. BREXPIPRAZOLE [Suspect]
     Active Substance: BREXPIPRAZOLE
     Indication: Antipsychotic therapy
     Dosage: UNK
  26. BREXPIPRAZOLE [Suspect]
     Active Substance: BREXPIPRAZOLE
     Indication: Schizophrenia
     Dosage: 1 MILLIGRAM, QD
     Route: 065
  27. BREXPIPRAZOLE [Suspect]
     Active Substance: BREXPIPRAZOLE
     Dosage: 4 MILLIGRAM, QD (INCREASED TO 4 MG DAILY)
     Route: 065
  28. BREXPIPRAZOLE [Suspect]
     Active Substance: BREXPIPRAZOLE
     Dosage: 111 MILLIGRAM, QD (INCREASED TO 111 MG, OVERDOSE: 111MG)
     Route: 065
  29. FLUPENTIXOL [Suspect]
     Active Substance: FLUPENTIXOL
     Indication: Antipsychotic therapy
     Dosage: UNK
  30. FLUPENTIXOL [Suspect]
     Active Substance: FLUPENTIXOL
     Indication: Schizophrenia
     Dosage: UNK
     Route: 030
  31. RISPERIDONE [Suspect]
     Active Substance: RISPERIDONE
     Indication: Schizophrenia
     Dosage: UNK
     Route: 030
  32. RISPERIDONE [Suspect]
     Active Substance: RISPERIDONE
     Dosage: 30 MILLIGRAM, (15 MG, BIW)
     Route: 030
  33. RISPERIDONE [Suspect]
     Active Substance: RISPERIDONE
     Dosage: 4 MG, UNKNOWN
     Route: 030
  34. RISPERIDONE [Suspect]
     Active Substance: RISPERIDONE
     Dosage: 50 MG, BIW
     Route: 030
  35. LURASIDONE [Concomitant]
     Active Substance: LURASIDONE
     Indication: Product used for unknown indication
     Dosage: 74 MILLIGRAM (MAXIMUM DOSE OF 148 MG PER DAY)
     Route: 065

REACTIONS (16)
  - Schizophrenia [Recovering/Resolving]
  - Therapy non-responder [Unknown]
  - Hyperprolactinaemia [Unknown]
  - Anxiety [Unknown]
  - Weight increased [Recovered/Resolved]
  - Treatment noncompliance [Recovered/Resolved]
  - Tremor [Unknown]
  - Hypotension [Recovered/Resolved]
  - Insomnia [Unknown]
  - Lethargy [Unknown]
  - Fatigue [Unknown]
  - Therapeutic product effect incomplete [Unknown]
  - Sedation [Unknown]
  - Overdose [Unknown]
  - Depression [Unknown]
  - Sedation complication [Unknown]
